FAERS Safety Report 8886512 (Version 1)
Quarter: 2012Q4

REPORT INFORMATION
  Report Type: 
  Country: US (occurrence: US)
  Receive Date: 20121105
  Receipt Date: 20121105
  Transmission Date: 20130627
  Serious: Yes (Hospitalization, Other)
  Sender: FDA-Public Use
  Company Number: US-009507513-1206USA02281

PATIENT

DRUGS (8)
  1. FOSAMAX [Suspect]
     Indication: OSTEOPOROSIS
     Dosage: 35 mg, UNK
     Dates: start: 1999, end: 2008
  2. FOSAMAX [Suspect]
     Dosage: 70 mg, qw
     Route: 048
     Dates: start: 20010824, end: 200508
  3. FOSAMAX [Suspect]
     Dosage: 70 UNK, UNK
     Route: 048
     Dates: start: 200512, end: 200710
  4. ALENDRONATE SODIUM [Suspect]
     Indication: OSTEOPOROSIS
     Dosage: 70 mg, qw
     Route: 048
     Dates: start: 200808, end: 201005
  5. VITAMINS (UNSPECIFIED) [Concomitant]
     Dosage: 1 daily
  6. CALCIUM (UNSPECIFIED) [Concomitant]
     Dosage: 1 daily
  7. PREMPRO [Concomitant]
     Indication: OSTEOPOROSIS
     Dosage: 0.625/2.5 UNK, qd
     Dates: start: 19990713
  8. FOSAMAX PLUS D [Suspect]
     Indication: OSTEOPOROSIS
     Dosage: 70 mg, qw
     Route: 048
     Dates: start: 20050908, end: 200511

REACTIONS (31)
  - Femur fracture [Unknown]
  - Osteonecrosis of jaw [Unknown]
  - Low turnover osteopathy [Unknown]
  - Fall [Unknown]
  - Open reduction of fracture [Unknown]
  - Tooth abscess [Unknown]
  - Tooth extraction [Unknown]
  - Tooth disorder [Unknown]
  - Tooth extraction [Unknown]
  - Anxiety [Unknown]
  - Depression [Unknown]
  - Medical device removal [Unknown]
  - Dental caries [Unknown]
  - Dental caries [Unknown]
  - Tooth abscess [Unknown]
  - Tooth extraction [Unknown]
  - Tooth infection [Unknown]
  - Tooth extraction [Unknown]
  - Hypertension [Unknown]
  - Weight decreased [Recovered/Resolved]
  - Tooth extraction [Unknown]
  - Palatal disorder [Unknown]
  - Mouth ulceration [Unknown]
  - Hyponatraemia [Unknown]
  - Comminuted fracture [Unknown]
  - Open reduction of fracture [Unknown]
  - Fall [Unknown]
  - Open reduction of fracture [Unknown]
  - Ankle fracture [Unknown]
  - Decubitus ulcer [Recovering/Resolving]
  - Nausea [Unknown]
